FAERS Safety Report 13686641 (Version 1)
Quarter: 2017Q2

REPORT INFORMATION
  Report Type: Spontaneous
  Country: BR (occurrence: BR)
  Receive Date: 20170623
  Receipt Date: 20170623
  Transmission Date: 20170830
  Serious: Yes (Death)
  Sender: FDA-Public Use
  Company Number: BR-ELI_LILLY_AND_COMPANY-BR201609000247

PATIENT
  Age: 70 Year
  Sex: Male
  Weight: 69 kg

DRUGS (10)
  1. EFFIENT [Suspect]
     Active Substance: PRASUGREL HYDROCHLORIDE
     Dosage: 10 MG, DAILY
     Route: 048
  2. ALLOPURINOL. [Concomitant]
     Active Substance: ALLOPURINOL
     Indication: VASCULAR GRAFT
     Dosage: 100 MG, BID
     Route: 048
  3. SINVASTATINA [Concomitant]
     Active Substance: SIMVASTATIN
     Indication: VASCULAR GRAFT
     Dosage: 40 MG, UNKNOWN
     Route: 048
  4. AAS [Concomitant]
     Active Substance: ASPIRIN
     Indication: VASCULAR GRAFT
     Dosage: 100 MG, QD
     Route: 048
  5. ARTROLIVE [Concomitant]
     Active Substance: CHONDROITIN SULFATE (BOVINE)\GLUCOSAMINE SULFATE
     Indication: MYOCARDIAL INFARCTION
     Dosage: 10 MG, QD
     Route: 048
     Dates: start: 20160306
  6. AVODART [Concomitant]
     Active Substance: DUTASTERIDE
     Indication: MYOCARDIAL INFARCTION
     Route: 048
     Dates: start: 20160306
  7. EFFIENT [Suspect]
     Active Substance: PRASUGREL HYDROCHLORIDE
     Indication: MYOCARDIAL INFARCTION
     Dosage: 10 MG, DAILY
     Route: 048
     Dates: start: 20160306, end: 20160819
  8. ATENOLOL. [Concomitant]
     Active Substance: ATENOLOL
     Indication: VASCULAR GRAFT
     Dosage: 25 MG, QID
     Route: 048
  9. OMEPRAZOL                          /00661201/ [Concomitant]
     Active Substance: OMEPRAZOLE
     Indication: PRODUCT USED FOR UNKNOWN INDICATION
     Dosage: 150 MG, BID
     Route: 048
     Dates: start: 20160806
  10. LOSARTANA POTASSICA [Concomitant]
     Active Substance: LOSARTAN
     Indication: VASCULAR GRAFT
     Dosage: .5 DF, QD
     Route: 048

REACTIONS (3)
  - Off label use [Recovered/Resolved]
  - Intentional product misuse [Recovered/Resolved]
  - Vascular procedure complication [Fatal]

NARRATIVE: CASE EVENT DATE: 20160306
